FAERS Safety Report 16384602 (Version 2)
Quarter: 2019Q2

REPORT INFORMATION
  Report Type: Report from Study
  Country: CR (occurrence: CR)
  Receive Date: 20190603
  Receipt Date: 20190617
  Transmission Date: 20190711
  Serious: Yes (Life-Threatening, Hospitalization)
  Sender: FDA-Public Use
  Company Number: PHHY2019CR127546

PATIENT
  Sex: Male
  Weight: 102 kg

DRUGS (4)
  1. SANDOSTATIN LAR DEPOT [Suspect]
     Active Substance: OCTREOTIDE ACETATE
     Indication: ACROMEGALY
     Dosage: 40 MG, QMO
     Route: 065
     Dates: start: 201705
  2. HYDROCORTISONE. [Suspect]
     Active Substance: HYDROCORTISONE
     Indication: PRODUCT USED FOR UNKNOWN INDICATION
     Dosage: UNK
     Route: 048
  3. TESTOSTERONE. [Concomitant]
     Active Substance: TESTOSTERONE
     Indication: THYROID DISORDER
     Dosage: 1 DF, (EVERY 21 DAYS)
     Route: 065
  4. HYDROCORTISONE. [Suspect]
     Active Substance: HYDROCORTISONE
     Dosage: 1/4 OF TABLET (8 HOURS 3TIMES DAILY), TID
     Route: 048
     Dates: start: 2017

REACTIONS (6)
  - Abdominal discomfort [Unknown]
  - Drug intolerance [Unknown]
  - Injection site pain [Unknown]
  - Ligament sprain [Unknown]
  - Mouth breathing [Unknown]
  - Blood urine present [Recovered/Resolved]
